FAERS Safety Report 17629460 (Version 1)
Quarter: 2020Q2

REPORT INFORMATION
  Report Type: Spontaneous
  Country: IT (occurrence: IT)
  Receive Date: 20200406
  Receipt Date: 20200406
  Transmission Date: 20200713
  Serious: Yes (Other)
  Sender: FDA-Public Use
  Company Number: IT-LUPIN PHARMACEUTICALS INC.-2020-01588

PATIENT

DRUGS (2)
  1. BETAMETHASONE. [Suspect]
     Active Substance: BETAMETHASONE
     Dosage: UNK, RE-ADMINISTRATION OF BETAMETHASONE
     Route: 065
  2. BETAMETHASONE. [Suspect]
     Active Substance: BETAMETHASONE
     Indication: BACK PAIN
     Dosage: UNK
     Route: 065

REACTIONS (3)
  - Type IV hypersensitivity reaction [Recovered/Resolved]
  - Steroid withdrawal syndrome [Recovered/Resolved]
  - Drug withdrawal headache [Recovered/Resolved]
